FAERS Safety Report 7865177-4 (Version None)
Quarter: 2011Q4

REPORT INFORMATION
  Report Type: 
  Country: None (occurrence: None)
  Receive Date: 20111028
  Receipt Date: 20101026
  Transmission Date: 20120403
  Serious: Yes (Hospitalization)
  Sender: FDA-Public Use
  Company Number: US-GLAXOSMITHKLINE-A0888816A

PATIENT
  Sex: Female

DRUGS (3)
  1. CONCURRENT MEDICATIONS [Concomitant]
  2. ADVAIR DISKUS 100/50 [Suspect]
     Indication: PULMONARY FIBROSIS
     Dosage: 1PUFF TWICE PER DAY
     Route: 055
  3. ANTIBIOTIC [Concomitant]

REACTIONS (5)
  - CATARACT [None]
  - COUGH [None]
  - BRONCHITIS [None]
  - CANDIDIASIS [None]
  - PNEUMONIA [None]
